FAERS Safety Report 15474202 (Version 3)
Quarter: 2019Q1

REPORT INFORMATION
  Report Type: Spontaneous
  Country: US (occurrence: US)
  Receive Date: 20181008
  Receipt Date: 20190205
  Transmission Date: 20190417
  Serious: Yes (Other)
  Sender: FDA-Public Use
  Company Number: US-SA-2018SA275856

PATIENT
  Age: 40 Year
  Sex: Female
  Weight: 72.57 kg

DRUGS (18)
  1. PROMETHAZINE [Concomitant]
     Active Substance: PROMETHAZINE\PROMETHAZINE HYDROCHLORIDE
  2. DECADRON [Concomitant]
     Active Substance: DEXAMETHASONE
  3. PRILOSEC [Concomitant]
     Active Substance: OMEPRAZOLE MAGNESIUM
  4. DEXAMETHASONE. [Concomitant]
     Active Substance: DEXAMETHASONE
  5. CLARITIN [CLARITHROMYCIN] [Concomitant]
     Active Substance: CLARITHROMYCIN
  6. HYDROCHLOROTHIAZIDE. [Concomitant]
     Active Substance: HYDROCHLOROTHIAZIDE
     Dosage: UNK
     Dates: start: 20110101
  7. EMEND [Concomitant]
     Active Substance: APREPITANT
  8. NEOSAR [Concomitant]
     Active Substance: CYCLOPHOSPHAMIDE
  9. ALOXI [Concomitant]
     Active Substance: PALONOSETRON HYDROCHLORIDE
  10. TAMOXIFEN [Concomitant]
     Active Substance: TAMOXIFEN
     Dosage: UNK
     Dates: start: 20140428, end: 20171211
  11. HYDROCODONE/ACETAMINOPHEN [Concomitant]
     Active Substance: ACETAMINOPHEN\HYDROCODONE
  12. ZOFRAN [Concomitant]
     Active Substance: ONDANSETRON HYDROCHLORIDE
  13. DIFLUCAN [Concomitant]
     Active Substance: FLUCONAZOLE
  14. DOCETAXEL. [Suspect]
     Active Substance: DOCETAXEL
     Indication: BREAST CANCER FEMALE
     Dosage: 132 MG, Q3W
     Route: 042
     Dates: start: 20131217, end: 20131217
  15. DOCETAXEL. [Suspect]
     Active Substance: DOCETAXEL
     Dosage: 132 MG, Q3W
     Route: 042
     Dates: start: 20140407, end: 20140407
  16. NORVASC [Concomitant]
     Active Substance: AMLODIPINE BESYLATE
     Dosage: UNK
     Dates: start: 20110101
  17. DOXORUBICIN [Concomitant]
     Active Substance: DOXORUBICIN
  18. NEURONTIN [Concomitant]
     Active Substance: GABAPENTIN

REACTIONS (1)
  - Alopecia [Not Recovered/Not Resolved]

NARRATIVE: CASE EVENT DATE: 20141007
